FAERS Safety Report 25911528 (Version 1)
Quarter: 2025Q4

REPORT INFORMATION
  Report Type: Spontaneous
  Country: US (occurrence: US)
  Receive Date: 20251013
  Receipt Date: 20251013
  Transmission Date: 20260119
  Serious: No
  Sender: RANBAXY
  Company Number: US-SUN PHARMACEUTICAL INDUSTRIES LTD-2025R1-521664

PATIENT
  Sex: Female

DRUGS (4)
  1. LORATADINE AND PSEUDOEPHEDRINE SULFATE [Interacting]
     Active Substance: LORATADINE\PSEUDOEPHEDRINE SULFATE
     Indication: Nasal decongestion therapy
     Dosage: UNK, QD
     Route: 048
     Dates: start: 20250726
  2. LORATADINE AND PSEUDOEPHEDRINE SULFATE [Interacting]
     Active Substance: LORATADINE\PSEUDOEPHEDRINE SULFATE
     Indication: Hypersensitivity
  3. PREDNISONE [Interacting]
     Active Substance: PREDNISONE
     Indication: Product used for unknown indication
     Dosage: 5 TABLETS, 10 MILLIGRAM, QD
     Route: 048
  4. WELLBUTRIN [Concomitant]
     Active Substance: BUPROPION HYDROCHLORIDE
     Indication: Product used for unknown indication
     Dosage: UNK
     Route: 065

REACTIONS (4)
  - Lip disorder [Recovering/Resolving]
  - Asthenia [Recovering/Resolving]
  - Potentiating drug interaction [Recovering/Resolving]
  - Hypoaesthesia [Recovering/Resolving]
